FAERS Safety Report 5968163-4 (Version None)
Quarter: 2008Q4

REPORT INFORMATION
  Report Type: 
  Country: None (occurrence: None)
  Receive Date: 20081117
  Receipt Date: 20081106
  Transmission Date: 20090506
  Serious: Yes (Hospitalization)
  Sender: FDA-Public Use
  Company Number: AECAN200800221

PATIENT
  Age: 55 Year
  Sex: Male

DRUGS (2)
  1. IMMUNE GLOBULIN INTRAVENOUS (HUMAN) [Suspect]
     Dosage: 30 GM; TOTAL; IV
     Route: 042
     Dates: start: 20080723, end: 20080723
  2. IMMUNE GLOBULIN INTRAVENOUS (HUMAN) [Suspect]

REACTIONS (10)
  - ABDOMINAL PAIN [None]
  - CELLULITIS [None]
  - CHILLS [None]
  - DYSPNOEA [None]
  - HYPERTENSION [None]
  - NAUSEA [None]
  - PYREXIA [None]
  - TACHYCARDIA [None]
  - UROSEPSIS [None]
  - VOMITING [None]
